FAERS Safety Report 7029576-5 (Version None)
Quarter: 2010Q4

REPORT INFORMATION
  Report Type: 
  Country: None (occurrence: None)
  Receive Date: 20101005
  Receipt Date: 20100928
  Transmission Date: 20110411
  Serious: Yes (Hospitalization)
  Sender: FDA-Public Use
  Company Number: BE-AMGEN-KDC441686

PATIENT
  Sex: Male

DRUGS (4)
  1. PANITUMUMAB [Suspect]
     Indication: COLORECTAL CANCER
     Route: 042
     Dates: start: 20100608, end: 20100810
  2. OXALIPLATIN [Suspect]
     Route: 042
     Dates: start: 20100608
  3. FLUOROURACIL [Suspect]
     Route: 042
     Dates: start: 20100608
  4. LEUCOVORIN CALCIUM [Concomitant]
     Route: 042
     Dates: start: 20100608

REACTIONS (1)
  - RESPIRATORY FAILURE [None]
